FAERS Safety Report 11181364 (Version 1)
Quarter: 2015Q2

REPORT INFORMATION
  Report Type: Spontaneous
  Country: US (occurrence: US)
  Receive Date: 20150611
  Receipt Date: 20150611
  Transmission Date: 20150821
  Serious: No
  Sender: FDA-Public Use
  Company Number: US-ENDO PHARMACEUTICALS INC.-LORA20140026

PATIENT
  Sex: Female

DRUGS (3)
  1. LORAZEPAM TABLETS 1MG [Suspect]
     Active Substance: LORAZEPAM
     Route: 048
     Dates: start: 20140929
  2. LORAZEPAM TABLETS 1MG [Suspect]
     Active Substance: LORAZEPAM
     Indication: NERVOUSNESS
     Route: 065
  3. LORAZEPAM TABLETS 1MG [Suspect]
     Active Substance: LORAZEPAM
     Route: 048
     Dates: start: 20140925, end: 20140925

REACTIONS (8)
  - Psychomotor hyperactivity [Unknown]
  - Feeling hot [Unknown]
  - Feeling jittery [Unknown]
  - Hyperhidrosis [Unknown]
  - Muscle twitching [Unknown]
  - Anxiety [Unknown]
  - Palpitations [Unknown]
  - Drug ineffective [Unknown]

NARRATIVE: CASE EVENT DATE: 201409
